FAERS Safety Report 5590157-1 (Version None)
Quarter: 2008Q1

REPORT INFORMATION
  Report Type: 
  Country: None (occurrence: None)
  Receive Date: 20080114
  Receipt Date: 20070920
  Transmission Date: 20080703
  Serious: No
  Sender: FDA-Public Use
  Company Number: US-ABBOTT-07P-163-0418631-00

PATIENT
  Sex: Female
  Weight: 7.718 kg

DRUGS (2)
  1. OMNICEF [Suspect]
     Indication: EAR INFECTION
     Dosage: 250MG/5MG 1.25ML BID
     Route: 048
     Dates: start: 20070917
  2. OMNICEF [Suspect]
     Indication: CANDIDIASIS

REACTIONS (1)
  - ERYTHEMA [None]
